FAERS Safety Report 4521008-1 (Version None)
Quarter: 2004Q4

REPORT INFORMATION
  Report Type: 
  Country: None (occurrence: None)
  Receive Date: 20041206
  Receipt Date: 20041118
  Transmission Date: 20050328
  Serious: Yes (Hospitalization)
  Sender: FDA-Public Use
  Company Number: SE-SHR-03-017450

PATIENT
  Age: 64 Year
  Sex: Female
  Weight: 73 kg

DRUGS (5)
  1. BETAFERON (INTERFERON BETA-1B) INJECTION [Suspect]
     Indication: MULTIPLE SCLEROSIS
     Dosage: 8 MIU, EVERY 2D, SUBCUTANEOUS
     Route: 058
     Dates: start: 19960101, end: 20030101
  2. BETAFERON (INTERFERON BETA-1B) INJECTION [Suspect]
     Indication: MULTIPLE SCLEROSIS
     Dosage: 8 MIU, EVERY 2D, SUBCUTANEOUS
     Route: 058
     Dates: start: 20040501
  3. SOLU-MEDROL [Concomitant]
  4. ATENOLOL [Concomitant]
  5. IKTORIVIL (CLONAZEPAM) [Concomitant]

REACTIONS (10)
  - CARDIOMYOPATHY [None]
  - CHEST PAIN [None]
  - CONDITION AGGRAVATED [None]
  - ELECTROCARDIOGRAM T WAVE BIPHASIC [None]
  - ELECTROCARDIOGRAM T WAVE INVERSION [None]
  - HYPERTONIA [None]
  - MULTIPLE SCLEROSIS [None]
  - MYOCARDITIS [None]
  - RED BLOOD CELL SEDIMENTATION RATE INCREASED [None]
  - VENTRICULAR DYSFUNCTION [None]
